FAERS Safety Report 7043386-4 (Version None)
Quarter: 2010Q3

REPORT INFORMATION
  Report Type: 
  Country: None (occurrence: None)
  Receive Date: 20100929
  Receipt Date: 20100722
  Transmission Date: 20110219
  Serious: Yes (Other)
  Sender: FDA-Public Use
  Company Number: US-WYE-H16359310

PATIENT
  Age: 28 Year
  Sex: Female
  Weight: 127.12 kg

DRUGS (2)
  1. PRISTIQ [Suspect]
     Indication: MAJOR DEPRESSION
     Dosage: 50 MG 3X PER 1 DAY, ORAL
     Route: 048
     Dates: start: 20100301
  2. ZOLPIDEM [Concomitant]

REACTIONS (1)
  - MEDICATION RESIDUE [None]
